FAERS Safety Report 7898034-8 (Version None)
Quarter: 2011Q4

REPORT INFORMATION
  Report Type: 
  Country: None (occurrence: None)
  Receive Date: 20111107
  Receipt Date: 20111107
  Transmission Date: 20120403
  Serious: Yes (Life-Threatening, Hospitalization)
  Sender: FDA-Public Use
  Company Number: None

PATIENT
  Age: 76 Year
  Sex: Male
  Weight: 96.161 kg

DRUGS (11)
  1. SIMVASTATIN [Suspect]
     Indication: VERTEBRAL ARTERY OCCLUSION
     Dosage: 80MG
     Route: 048
     Dates: start: 20090127, end: 20110815
  2. POTASSIUM SALTS [Concomitant]
  3. PLAVIX [Concomitant]
  4. MIRAPEX [Concomitant]
  5. RED YEAST RICE [Concomitant]
  6. AMLODIPINE [Concomitant]
  7. SERTRALINE HYDROCHLORIDE [Concomitant]
  8. LISINOPRIL [Concomitant]
  9. METFORMIN HCL [Concomitant]
  10. COQ10 [Concomitant]
  11. SIMVASTATIN [Concomitant]

REACTIONS (16)
  - MUSCLE SPASMS [None]
  - RESTLESSNESS [None]
  - MYALGIA [None]
  - JOINT STIFFNESS [None]
  - ANXIETY [None]
  - DEPRESSION [None]
  - INSOMNIA [None]
  - CONVULSION [None]
  - MYOPATHY [None]
  - PARAPLEGIA [None]
  - BONE PAIN [None]
  - THINKING ABNORMAL [None]
  - AGITATION [None]
  - PRODUCT ODOUR ABNORMAL [None]
  - FALL [None]
  - HEAD INJURY [None]
